FAERS Safety Report 10484042 (Version 1)
Quarter: 2014Q3

REPORT INFORMATION
  Report Type: Spontaneous
  Country: US (occurrence: None)
  Receive Date: 20140926
  Receipt Date: 20140926
  Transmission Date: 20150326
  Serious: Yes (Other)
  Sender: FDA-Public Use
  Company Number: HA14-350-AE

PATIENT
  Age: 77 Year
  Sex: Male
  Weight: 97.07 kg

DRUGS (5)
  1. TOPROL 25 MG [Concomitant]
  2. PROTONIX 40 MG (ONE TABLET A DAY) [Concomitant]
  3. METFORMIN HCL ER TABLETS, USP 500 MG (MANUFACTURED BY ^APOTEC^) [Concomitant]
  4. COUMADIN 2.5 MG [Concomitant]
  5. METFORMIN HCL [Suspect]
     Active Substance: METFORMIN HYDROCHLORIDE
     Indication: DIABETES MELLITUS
     Dosage: 1 TABLET BID, ORAL
     Route: 048
     Dates: start: 20140714, end: 20140827

REACTIONS (6)
  - Medication residue present [None]
  - Blood glucose increased [None]
  - Product solubility abnormal [None]
  - Diabetes mellitus inadequate control [None]
  - Blood creatinine increased [None]
  - Drug ineffective [None]

NARRATIVE: CASE EVENT DATE: 20140827
